FAERS Safety Report 4398650-4 (Version None)
Quarter: 2004Q3

REPORT INFORMATION
  Report Type: 
  Country: None (occurrence: None)
  Receive Date: 20040715
  Receipt Date: 20040525
  Transmission Date: 20050211
  Serious: Yes (Life-Threatening)
  Sender: FDA-Public Use
  Company Number: JP-BRISTOL-MYERS SQUIBB COMPANY-12597845

PATIENT
  Age: 73 Year
  Sex: Female

DRUGS (5)
  1. PARAPLATIN [Suspect]
     Indication: UTERINE CANCER
     Route: 042
     Dates: start: 20040428, end: 20040428
  2. TAXOTERE [Suspect]
     Indication: UTERINE CANCER
     Route: 042
     Dates: start: 20040428, end: 20040428
  3. DECADRON [Concomitant]
     Route: 048
     Dates: start: 20040426, end: 20040428
  4. ZOFRAN [Concomitant]
     Route: 042
     Dates: start: 20040428, end: 20040428
  5. ZANTAC [Concomitant]
     Route: 042
     Dates: start: 20040428, end: 20040428

REACTIONS (4)
  - PLATELET COUNT DECREASED [None]
  - RENAL FAILURE ACUTE [None]
  - SEPSIS [None]
  - WHITE BLOOD CELL COUNT DECREASED [None]
